FAERS Safety Report 4650837-9 (Version None)
Quarter: 2005Q2

REPORT INFORMATION
  Report Type: 
  Country: None (occurrence: None)
  Receive Date: 20050429
  Receipt Date: 20050420
  Transmission Date: 20051028
  Serious: Yes (Death, Other)
  Sender: FDA-Public Use
  Company Number: 163-20785-04090290

PATIENT
  Age: 32 Year
  Sex: Male

DRUGS (1)
  1. THALOMID [Suspect]
     Dosage: ORAL
     Route: 048
     Dates: start: 40040824

REACTIONS (1)
  - DRUG EXPOSURE DURING PREGNANCY [None]
